FAERS Safety Report 5441778-8 (Version None)
Quarter: 2007Q3

REPORT INFORMATION
  Report Type: 
  Country: None (occurrence: None)
  Receive Date: 20070830
  Receipt Date: 20070830
  Transmission Date: 20080115
  Serious: Yes (Hospitalization, Other)
  Sender: FDA-Public Use
  Company Number: None

PATIENT
  Age: 32 Year
  Sex: Female
  Weight: 74.8435 kg

DRUGS (1)
  1. PROAIR HFA [Suspect]
     Indication: ASTHMA
     Dosage: TWICE A DAY PO
     Route: 048
     Dates: start: 20061005, end: 20061007

REACTIONS (10)
  - ASTHMA [None]
  - CHEST PAIN [None]
  - CONDITION AGGRAVATED [None]
  - DRUG EFFECT DECREASED [None]
  - DRUG HYPERSENSITIVITY [None]
  - DRUG INEFFECTIVE [None]
  - HYPOAESTHESIA [None]
  - INFLAMMATION [None]
  - LUNG DISORDER [None]
  - MYOCARDIAL INFARCTION [None]
